FAERS Safety Report 7693448-3 (Version None)
Quarter: 2011Q3

REPORT INFORMATION
  Report Type: 
  Country: None (occurrence: None)
  Receive Date: 20110815
  Receipt Date: 20110811
  Transmission Date: 20111222
  Serious: Yes (Death)
  Sender: FDA-Public Use
  Company Number: 2011SP037892

PATIENT
  Age: 25 Year
  Sex: Male

DRUGS (2)
  1. ALCOHOL (ETHANOL) [Suspect]
     Indication: PRODUCT USED FOR UNKNOWN INDICATION
     Dates: start: 20110805
  2. MIRTAZAPINE [Suspect]
     Indication: DEPRESSION
     Dosage: 15 MG;QD;PO
     Route: 048
     Dates: start: 20110803, end: 20110804

REACTIONS (4)
  - COMPLETED SUICIDE [None]
  - ACTIVATION SYNDROME [None]
  - FALL [None]
  - DISCOMFORT [None]
